FAERS Safety Report 25751306 (Version 1)
Quarter: 2025Q3

REPORT INFORMATION
  Report Type: Other
  Country: JP (occurrence: JP)
  Receive Date: 20250902
  Receipt Date: 20250902
  Transmission Date: 20251021
  Serious: Yes (Other)
  Sender: OMNIVIUM PHARMACEUTICALS LLC
  Company Number: JP-Omnivium Pharmaceuticals LLC-2183649

PATIENT
  Age: 66 Year
  Sex: Female

DRUGS (4)
  1. ISONIAZID [Suspect]
     Active Substance: ISONIAZID
     Indication: Pulmonary tuberculosis
  2. RIFAMPIN [Suspect]
     Active Substance: RIFAMPIN
  3. PYRAZINAMIDE [Suspect]
     Active Substance: PYRAZINAMIDE
  4. ETHAMBUTOL [Suspect]
     Active Substance: ETHAMBUTOL HYDROCHLORIDE

REACTIONS (2)
  - Orbital myositis [Recovering/Resolving]
  - Paradoxical drug reaction [Recovering/Resolving]
